FAERS Safety Report 5012234-6 (Version None)
Quarter: 2006Q2

REPORT INFORMATION
  Report Type: 
  Country: None (occurrence: None)
  Receive Date: 20060524
  Receipt Date: 20060511
  Transmission Date: 20061013
  Serious: Yes (Other)
  Sender: FDA-Public Use
  Company Number: 2006012334

PATIENT
  Sex: Female
  Weight: 60.782 kg

DRUGS (8)
  1. TIKOSYN [Suspect]
     Indication: ATRIAL FIBRILLATION
     Dosage: 0.5 MG (0.25 MG, 2 IN 1 D)
     Dates: start: 20020101
  2. TOPROL-XL [Suspect]
     Indication: ILL-DEFINED DISORDER
  3. AZITHROMYCIN [Suspect]
     Indication: BRONCHITIS
     Dosage: (250 MG)
     Dates: start: 20060301, end: 20060101
  4. CEFUROXIME AXETIL [Suspect]
     Indication: BRONCHITIS
     Dates: start: 20060311, end: 20060301
  5. METRONIDAZOLE [Suspect]
     Indication: CLOSTRIDIAL INFECTION
     Dates: start: 20060101
  6. DIGOXIN [Concomitant]
  7. COUMADIN [Concomitant]
  8. FOSAMAX [Concomitant]

REACTIONS (6)
  - BLOOD PRESSURE IMMEASURABLE [None]
  - BRONCHITIS [None]
  - CLOSTRIDIAL INFECTION [None]
  - DYSPEPSIA [None]
  - FUNGAL INFECTION [None]
  - ORTHOSTATIC HYPOTENSION [None]
